FAERS Safety Report 26175271 (Version 1)
Quarter: 2025Q4

REPORT INFORMATION
  Report Type: Spontaneous
  Country: GB (occurrence: GB)
  Receive Date: 20251218
  Receipt Date: 20251218
  Transmission Date: 20260118
  Serious: Yes (Life-Threatening, Hospitalization, Other)
  Sender: AMGEN
  Company Number: GB-AMGEN-GBRSP2025244592

PATIENT
  Age: 15 Year
  Sex: Female

DRUGS (9)
  1. ADALIMUMAB [Suspect]
     Active Substance: ADALIMUMAB
     Indication: Dermatomyositis
     Dosage: UNK
     Route: 065
  2. MYCOPHENOLATE MOFETIL [Concomitant]
     Active Substance: MYCOPHENOLATE MOFETIL
     Indication: Dermatomyositis
  3. TACROLIMUS [Concomitant]
     Active Substance: TACROLIMUS
     Indication: Dermatomyositis
  4. BARICITINIB [Concomitant]
     Active Substance: BARICITINIB
     Indication: Dermatomyositis
  5. CYCLOPHOSPHAMIDE [Concomitant]
     Active Substance: CYCLOPHOSPHAMIDE
     Indication: Dermatomyositis
     Route: 040
  6. CYCLOPHOSPHAMIDE [Concomitant]
     Active Substance: CYCLOPHOSPHAMIDE
     Dosage: UNK, (RETREATED)
  7. RITUXIMAB [Concomitant]
     Active Substance: RITUXIMAB
     Indication: Dermatomyositis
  8. RITUXIMAB [Concomitant]
     Active Substance: RITUXIMAB
     Dosage: 1 GRAM, BID, (RETREATED)
     Route: 040
  9. HUMAN IMMUNOGLOBULIN G [Concomitant]
     Active Substance: HUMAN IMMUNOGLOBULIN G
     Indication: Dermatomyositis
     Route: 040

REACTIONS (7)
  - Abscess limb [Unknown]
  - Pneumonia [Unknown]
  - Dermatomyositis [Recovering/Resolving]
  - Drug ineffective for unapproved indication [Unknown]
  - Staphylococcus test positive [Unknown]
  - COVID-19 [Unknown]
  - Off label use [Unknown]
